FAERS Safety Report 13810937 (Version 1)
Quarter: 2017Q3

REPORT INFORMATION
  Report Type: Spontaneous
  Country: US (occurrence: US)
  Receive Date: 20170728
  Receipt Date: 20170728
  Transmission Date: 20171127
  Serious: No
  Sender: FDA-Public Use
  Company Number: US-ROCHE-1366922

PATIENT
  Sex: Female
  Weight: 66.28 kg

DRUGS (1)
  1. BONIVA [Suspect]
     Active Substance: IBANDRONATE SODIUM
     Indication: PRODUCT USED FOR UNKNOWN INDICATION
     Route: 042
     Dates: start: 20140311, end: 20140311

REACTIONS (6)
  - Muscle tightness [Unknown]
  - Cellulitis [Unknown]
  - Peripheral swelling [Unknown]
  - Burning sensation [Unknown]
  - Ligament sprain [Unknown]
  - Pain [Unknown]
